FAERS Safety Report 9713948 (Version 1)
Quarter: 2013Q4

REPORT INFORMATION
  Report Type: Spontaneous
  Country: US (occurrence: US)
  Receive Date: 20131126
  Receipt Date: 20131126
  Transmission Date: 20140711
  Serious: No
  Sender: FDA-Public Use
  Company Number: US-GILEAD-2008-0018282

PATIENT
  Sex: Female

DRUGS (8)
  1. LETAIRIS [Suspect]
     Indication: PULMONARY ARTERIAL HYPERTENSION
     Route: 048
     Dates: start: 20080328
  2. BENICAR [Concomitant]
     Dosage: AS DIRECTED
     Route: 048
  3. LASIX [Concomitant]
     Dosage: AS DIRECTED
     Route: 048
  4. ZOLOFT [Concomitant]
     Dosage: AS DIRECTED
     Route: 048
  5. ARIMIDEX [Concomitant]
     Dosage: AS DIRECTED
     Route: 048
  6. DILTIAZEM [Concomitant]
     Dosage: AS DIRECTED
     Route: 048
  7. BONIVA [Concomitant]
     Dosage: AS DIRECTED
     Route: 048
  8. CALCARB PLUS D [Concomitant]
     Dosage: AS DIRECTED
     Route: 048

REACTIONS (1)
  - Nasal congestion [None]
